FAERS Safety Report 7308111 (Version 5)
Quarter: 2013Q1

REPORT INFORMATION
  Report Type: Report from Study
  Country: PT (occurrence: PT)
  Receive Date: 20100308
  Receipt Date: 20130328
  Transmission Date: 20140127
  Serious: Yes (Hospitalization)
  Sender: FDA-Public Use
  Company Number: PT-ROCHE-684122

PATIENT
  Age: 74 Year
  Sex: Female
  Weight: 85 kg

DRUGS (7)
  1. TOCILIZUMAB [Suspect]
     Indication: RHEUMATOID ARTHRITIS
     Dosage: FORM: PERFUSION. DATE OF LAST DOSE PRIOR TO SAE: 15 JAN 2010. TEMPORARILY INTERRUPTED
     Route: 042
     Dates: start: 20090325, end: 20100201
  2. TOCILIZUMAB [Suspect]
     Indication: RHEUMATOID ARTHRITIS
     Dosage: MA21573
     Route: 042
  3. FOLIC ACID [Concomitant]
     Dosage: TDD: 5 MG ONCE WEEK
     Route: 065
  4. CALCIUM CARBONATE [Concomitant]
     Route: 065
  5. PREDNISOLONE [Concomitant]
     Route: 065
     Dates: start: 2004
  6. METHOTREXATE [Concomitant]
     Dosage: TDD: 20 MG ONCE WEEK
     Route: 065
     Dates: start: 2004
  7. ATORVASTATIN [Concomitant]
     Route: 065
     Dates: start: 20090617

REACTIONS (2)
  - Atrial flutter [Not Recovered/Not Resolved]
  - Pneumonia [Recovered/Resolved]
